FAERS Safety Report 9989311 (Version 2)
Quarter: 2014Q2

REPORT INFORMATION
  Report Type: Spontaneous
  Country: RO (occurrence: RO)
  Receive Date: 20140310
  Receipt Date: 20140403
  Transmission Date: 20141212
  Serious: No
  Sender: FDA-Public Use
  Company Number: RO-SA-2014SA023401

PATIENT
  Age: 33 Year
  Sex: Female

DRUGS (3)
  1. ARAVA [Suspect]
     Indication: RHEUMATOID ARTHRITIS
     Dosage: STRENGTH: 20 MG
     Route: 048
     Dates: start: 2013, end: 201402
  2. ENBREL [Concomitant]
     Indication: RHEUMATOID ARTHRITIS
  3. MEDROL [Concomitant]
     Indication: RHEUMATOID ARTHRITIS
     Route: 048

REACTIONS (1)
  - Exposure during pregnancy [Unknown]
